FAERS Safety Report 12318795 (Version 2)
Quarter: 2020Q3

REPORT INFORMATION
  Report Type: Spontaneous
  Country: US (occurrence: US)
  Receive Date: 20160429
  Receipt Date: 20200925
  Transmission Date: 20201102
  Serious: Yes (Other)
  Sender: FDA-Public Use
  Company Number: US-SA-2016SA080348

PATIENT

DRUGS (3)
  1. LANTUS [Concomitant]
     Active Substance: INSULIN GLARGINE
     Dosage: 40 UNITS DAILY
     Route: 065
  2. TOUJEO [Suspect]
     Active Substance: INSULIN GLARGINE
     Indication: TYPE 2 DIABETES MELLITUS
     Dosage: 45 UNITS DAILY
     Route: 065
     Dates: start: 20160413, end: 201604
  3. TOUJEO [Suspect]
     Active Substance: INSULIN GLARGINE
     Dosage: 50 UNITS DAILY
     Route: 065
     Dates: start: 20160419

REACTIONS (5)
  - Expired product administered [Unknown]
  - Cataract [Unknown]
  - Visual impairment [Unknown]
  - Blood glucose increased [Not Recovered/Not Resolved]
  - Product storage error [Unknown]

NARRATIVE: CASE EVENT DATE: 201604
